FAERS Safety Report 24891461 (Version 1)
Quarter: 2025Q1

REPORT INFORMATION
  Report Type: Spontaneous
  Country: US (occurrence: US)
  Receive Date: 20250127
  Receipt Date: 20250127
  Transmission Date: 20250409
  Serious: No
  Sender: PFIZER
  Company Number: US-PFIZER INC-202500016808

PATIENT
  Sex: Female
  Weight: 99.32 kg

DRUGS (1)
  1. COLESTIPOL HYDROCHLORIDE [Suspect]
     Active Substance: COLESTIPOL HYDROCHLORIDE
     Indication: Diarrhoea
     Dates: start: 2023

REACTIONS (2)
  - Off label use [Unknown]
  - Drug ineffective for unapproved indication [Unknown]
